FAERS Safety Report 8435285 (Version 6)
Quarter: 2013Q3

REPORT INFORMATION
  Report Type: Report from Study
  Country: US (occurrence: US)
  Receive Date: 20120301
  Receipt Date: 20130826
  Transmission Date: 20140515
  Serious: Yes (Death, Hospitalization)
  Sender: FDA-Public Use
  Company Number: US-JNJFOC-20120212919

PATIENT
  Age: 83 Year
  Sex: Female
  Weight: 60.78 kg

DRUGS (8)
  1. INFLIXIMAB, RECOMBINANT [Suspect]
     Indication: PSORIASIS
     Route: 042
     Dates: start: 20091006, end: 20110208
  2. TRIAMCINOLONE [Concomitant]
     Route: 065
     Dates: start: 20110504
  3. CORTICOSTEROIDS [Concomitant]
  4. SYNTHROID [Concomitant]
     Route: 065
  5. PRAVASTATIN [Concomitant]
     Route: 065
  6. NIFEDIPINE [Concomitant]
     Route: 065
  7. MAXZIDE [Concomitant]
     Route: 065
  8. ALBUTEROL [Concomitant]
     Route: 065

REACTIONS (5)
  - Respiratory failure [Fatal]
  - Lobar pneumonia [Fatal]
  - Septic shock [Fatal]
  - Small cell lung cancer [Fatal]
  - Bundle branch block [Unknown]
